FAERS Safety Report 5778845-5 (Version None)
Quarter: 2008Q2

REPORT INFORMATION
  Report Type: 
  Country: None (occurrence: None)
  Receive Date: 20080619
  Receipt Date: 20080610
  Transmission Date: 20081010
  Serious: Yes (Other)
  Sender: FDA-Public Use
  Company Number: US-JNJFOC-20070504197

PATIENT
  Sex: Male
  Weight: 113.4 kg

DRUGS (17)
  1. DOXIL [Suspect]
     Indication: MULTIPLE MYELOMA
     Dosage: DAY 4 OF EACH CYCLE
     Route: 042
  2. VELCADE [Suspect]
     Indication: MULTIPLE MYELOMA
     Dosage: DAYS 1, 4, 8 AND 11 FOLLOWED BY A 10 DAY BREAK
     Route: 042
  3. DEXAMETHASONE TAB [Suspect]
     Dosage: DAYS 1, 2, 4, 5, 8, 9, 11 AND 12 OF CYCLE 2-6
     Route: 048
  4. DEXAMETHASONE TAB [Suspect]
     Indication: MULTIPLE MYELOMA
     Dosage: DAYS 1, 2, 4, 5, 8, 9, 11 AND 12 OF CYCLE 1
     Route: 048
  5. ZOMETA [Concomitant]
     Route: 065
  6. CHANTIX [Concomitant]
     Route: 065
  7. LASIX [Concomitant]
     Route: 065
  8. PEPCID [Concomitant]
     Route: 065
  9. ERGOCALCIFEROL [Concomitant]
     Route: 065
  10. ASPIRIN [Concomitant]
     Route: 065
  11. POTASSIUM CHLORIDE [Concomitant]
     Route: 065
  12. PANTHENOL [Concomitant]
     Route: 065
  13. NICOTINAMIDE [Concomitant]
     Route: 065
  14. RIBOFLAVIN TAB [Concomitant]
     Route: 065
  15. THIAMINE HCL [Concomitant]
     Route: 065
  16. RETINOL [Concomitant]
     Route: 065
  17. FOLIC ACID [Concomitant]
     Route: 065

REACTIONS (2)
  - ALANINE AMINOTRANSFERASE INCREASED [None]
  - ASPARTATE AMINOTRANSFERASE INCREASED [None]
